FAERS Safety Report 9632492 (Version 1)
Quarter: 2013Q4

REPORT INFORMATION
  Report Type: Spontaneous
  Country: US (occurrence: None)
  Receive Date: 20131018
  Receipt Date: 20131018
  Transmission Date: 20140711
  Serious: No
  Sender: FDA-Public Use
  Company Number: None

PATIENT
  Age: 40 Year
  Sex: Female

DRUGS (7)
  1. TECFIDERA [Suspect]
     Indication: MULTIPLE SCLEROSIS
     Dosage: 1 CAPSULE
     Route: 048
  2. WELLBUTRIN XL [Concomitant]
  3. PROVIGIL [Concomitant]
  4. ADDERALL [Concomitant]
  5. EFFEXOR XR [Concomitant]
  6. VALIUM [Concomitant]
  7. PHRENLIN FORTE [Concomitant]

REACTIONS (1)
  - Headache [None]
